FAERS Safety Report 13839258 (Version 4)
Quarter: 2017Q3

REPORT INFORMATION
  Report Type: Spontaneous
  Country: JP (occurrence: JP)
  Receive Date: 20170807
  Receipt Date: 20170828
  Transmission Date: 20171127
  Serious: Yes (Other)
  Sender: FDA-Public Use
  Company Number: JP-009507513-1708JPN000672J

PATIENT
  Sex: Male

DRUGS (1)
  1. KEYTRUDA [Suspect]
     Active Substance: PEMBROLIZUMAB
     Indication: NON-SMALL CELL LUNG CANCER
     Dosage: 200 MG, Q3W
     Route: 041
     Dates: start: 20170616, end: 20170707

REACTIONS (5)
  - Large intestinal ulcer [Unknown]
  - Pyrexia [Unknown]
  - Peritonitis [Unknown]
  - Abdominal pain [Not Recovered/Not Resolved]
  - Gastrointestinal perforation [Unknown]
